FAERS Safety Report 6322025-1 (Version None)
Quarter: 2009Q3

REPORT INFORMATION
  Report Type: 
  Country: None (occurrence: None)
  Receive Date: 20090824
  Receipt Date: 20090818
  Transmission Date: 20100115
  Serious: No
  Sender: FDA-Public Use
  Company Number: KR-JNJFOC-20090805707

PATIENT
  Sex: Female

DRUGS (2)
  1. DURAGESIC-100 [Suspect]
     Indication: INTERVERTEBRAL DISC PROTRUSION
     Route: 062
  2. UNKNOWN MEDICATION [Concomitant]
     Indication: ARTHRITIS
     Route: 065

REACTIONS (6)
  - ARTHRALGIA [None]
  - DRUG ADMINISTRATION ERROR [None]
  - DRUG PRESCRIBING ERROR [None]
  - FATIGUE [None]
  - JOINT SWELLING [None]
  - PRURITUS [None]
